FAERS Safety Report 6342175-3 (Version None)
Quarter: 2009Q3

REPORT INFORMATION
  Report Type: 
  Country: None (occurrence: None)
  Receive Date: 20090903
  Receipt Date: 20090903
  Transmission Date: 20100115
  Serious: Yes (Life-Threatening, Other)
  Sender: FDA-Public Use
  Company Number: None

PATIENT
  Age: 79 Year
  Sex: Female
  Weight: 52.6173 kg

DRUGS (2)
  1. LEXISCAN [Suspect]
     Indication: CARDIAC STRESS TEST
     Dosage: 9:30 A.M.
     Dates: start: 20090723
  2. THALLIUM [Concomitant]

REACTIONS (6)
  - DIARRHOEA [None]
  - HEADACHE [None]
  - MALAISE [None]
  - MUSCULOSKELETAL STIFFNESS [None]
  - NAUSEA [None]
  - PAIN [None]
